FAERS Safety Report 24254115 (Version 1)
Quarter: 2024Q3

REPORT INFORMATION
  Report Type: Report from Study
  Country: US (occurrence: US)
  Receive Date: 20240827
  Receipt Date: 20240827
  Transmission Date: 20241017
  Serious: Yes (Hospitalization)
  Sender: EISAI
  Company Number: US-Eisai-EC-2024-172858

PATIENT
  Age: 58 Year
  Sex: Male
  Weight: 73.0 kg

DRUGS (1)
  1. LENVIMA [Suspect]
     Active Substance: LENVATINIB
     Indication: Cholangiocarcinoma
     Route: 048
     Dates: start: 20240508, end: 20240810

REACTIONS (2)
  - Gastric ulcer [Unknown]
  - Gastrointestinal haemorrhage [Unknown]

NARRATIVE: CASE EVENT DATE: 20240101
